FAERS Safety Report 6059698-7 (Version None)
Quarter: 2009Q1

REPORT INFORMATION
  Report Type: 
  Country: None (occurrence: None)
  Receive Date: 20090130
  Receipt Date: 20090120
  Transmission Date: 20090719
  Serious: Yes (Other)
  Sender: FDA-Public Use
  Company Number: GB-PFIZER INC-2009160056

PATIENT

DRUGS (3)
  1. METHYLPREDNISOLONE AND METHYLPREDNISOLONE ACETATE AND METHYLPREDNISOLO [Suspect]
     Indication: RAYNAUD'S PHENOMENON
     Dosage: 100 MG, UNK
  2. RAMIPRIL [Suspect]
     Indication: RAYNAUD'S PHENOMENON
  3. RITUXIMAB [Suspect]
     Indication: RAYNAUD'S PHENOMENON
     Dosage: 1000 MG, UNK

REACTIONS (1)
  - RAYNAUD'S PHENOMENON [None]
